FAERS Safety Report 23081788 (Version 1)
Quarter: 2023Q4

REPORT INFORMATION
  Report Type: Other
  Country: US (occurrence: None)
  Receive Date: 20231019
  Receipt Date: 20231019
  Transmission Date: 20240109
  Serious: Yes (Other)
  Sender: FDA-Public Use
  Company Number: US-ROCHE-2839251

PATIENT
  Age: 57 Year
  Sex: Female
  Weight: 99.88 kg

DRUGS (6)
  1. OCREVUS [Suspect]
     Active Substance: OCRELIZUMAB
     Indication: Relapsing-remitting multiple sclerosis
     Dosage: ONGOING YES?DATE OF TREATMENT: 04/NOV/2020, 18/NOV/2020, 19/MAY/2021.
     Route: 042
     Dates: start: 2020
  2. PFIZER-BIONTECH COVID-19 VACCINE [Suspect]
     Active Substance: TOZINAMERAN
     Indication: Product used for unknown indication
     Dosage: ONGOING NO
     Route: 065
     Dates: end: 20210413
  3. ATENOLOL [Concomitant]
     Active Substance: ATENOLOL
     Dosage: ONGOING NO
  4. ATENOLOL [Concomitant]
     Active Substance: ATENOLOL
     Dosage: ONGOING YES
     Route: 048
  5. OMEPRAZOLE [Concomitant]
     Active Substance: OMEPRAZOLE
  6. IBUPROFEN [Concomitant]
     Active Substance: IBUPROFEN

REACTIONS (15)
  - Syncope [Recovered/Resolved]
  - Chills [Recovered/Resolved]
  - Urinary incontinence [Recovered/Resolved]
  - Asthenia [Recovered/Resolved]
  - Body temperature increased [Recovered/Resolved]
  - Oedema [Unknown]
  - Decreased appetite [Unknown]
  - Weight decreased [Unknown]
  - Hypersomnia [Unknown]
  - Fungal infection [Unknown]
  - Pyrexia [Recovered/Resolved]
  - Heart rate decreased [Recovered/Resolved]
  - Gait disturbance [Not Recovered/Not Resolved]
  - Gait disturbance [Not Recovered/Not Resolved]
  - Product dose omission issue [Unknown]

NARRATIVE: CASE EVENT DATE: 20210414
